FAERS Safety Report 9982028 (Version 2)
Quarter: 2014Q1

REPORT INFORMATION
  Report Type: Report from Study
  Country: US (occurrence: US)
  Receive Date: 20140307
  Receipt Date: 20140307
  Transmission Date: 20141002
  Serious: Yes (Hospitalization)
  Sender: FDA-Public Use
  Company Number: US-ABBVIE-13P-163-1150976-00

PATIENT
  Age: 34 Year
  Sex: Female
  Weight: 90.8 kg

DRUGS (4)
  1. HUMIRA [Suspect]
     Indication: CROHN^S DISEASE
     Dates: start: 20130912
  2. HUMIRA [Suspect]
     Dates: start: 20130926
  3. HUMIRA [Suspect]
     Dates: start: 20131010
  4. IMURAN [Concomitant]
     Indication: INFLAMMATORY BOWEL DISEASE

REACTIONS (1)
  - Abdominal pain [Not Recovered/Not Resolved]
